FAERS Safety Report 6242449-0 (Version None)
Quarter: 2009Q2

REPORT INFORMATION
  Report Type: 
  Country: None (occurrence: None)
  Receive Date: 20090622
  Receipt Date: 20090622
  Transmission Date: 20091009
  Serious: Yes (Other)
  Sender: FDA-Public Use
  Company Number: None

PATIENT
  Age: 60 Year
  Sex: Female
  Weight: 49.8957 kg

DRUGS (1)
  1. ZICAM ? ? [Suspect]
     Indication: NASOPHARYNGITIS
     Dosage: NASAL SWABS 1 PER DAY- NASAL
     Route: 045
     Dates: start: 20080301, end: 20080307

REACTIONS (1)
  - ANOSMIA [None]
